FAERS Safety Report 21416527 (Version 6)
Quarter: 2024Q1

REPORT INFORMATION
  Report Type: Spontaneous
  Country: CA (occurrence: CA)
  Receive Date: 20221006
  Receipt Date: 20240201
  Transmission Date: 20240410
  Serious: Yes (Congenital Anomaly)
  Sender: FDA-Public Use
  Company Number: CA-ABBVIE-4132430

PATIENT
  Sex: Female

DRUGS (62)
  1. HUMIRA [Suspect]
     Active Substance: ADALIMUMAB
     Indication: Maternal exposure timing unspecified
     Route: 064
  2. PREDNISONE [Suspect]
     Active Substance: PREDNISONE
     Indication: Maternal exposure timing unspecified
     Route: 064
  3. ACETAMINOPHEN\OXYCODONE HYDROCHLORIDE [Suspect]
     Active Substance: ACETAMINOPHEN\OXYCODONE HYDROCHLORIDE
     Indication: Product used for unknown indication
     Route: 064
  4. FOLIC ACID [Suspect]
     Active Substance: FOLIC ACID
     Indication: Maternal exposure timing unspecified
     Route: 064
  5. RITUXIMAB [Suspect]
     Active Substance: RITUXIMAB
     Indication: Maternal exposure timing unspecified
     Route: 064
  6. TOPICORT [Suspect]
     Active Substance: DESOXIMETASONE
     Indication: Maternal exposure timing unspecified
     Route: 064
  7. ARAVA [Suspect]
     Active Substance: LEFLUNOMIDE
     Indication: Maternal exposure timing unspecified
     Route: 064
  8. CIMZIA [Suspect]
     Active Substance: CERTOLIZUMAB PEGOL
     Indication: Maternal exposure timing unspecified
     Route: 064
  9. OXYCODONE TEREPHTHALATE [Suspect]
     Active Substance: OXYCODONE TEREPHTHALATE
     Indication: Product used for unknown indication
     Route: 064
  10. METHOTREXATE [Suspect]
     Active Substance: METHOTREXATE
     Indication: Maternal exposure timing unspecified
     Route: 064
  11. METHOTREXATE [Suspect]
     Active Substance: METHOTREXATE
     Indication: Maternal exposure timing unspecified
     Route: 064
  12. CETIRIZINE HYDROCHLORIDE [Suspect]
     Active Substance: CETIRIZINE HYDROCHLORIDE
     Indication: Maternal exposure timing unspecified
     Route: 064
  13. HYDROXYCHLOROQUINE [Suspect]
     Active Substance: HYDROXYCHLOROQUINE
     Indication: Maternal exposure timing unspecified
     Route: 064
  14. ORENCIA [Suspect]
     Active Substance: ABATACEPT
     Indication: Maternal exposure timing unspecified
     Dosage: 160.0 MG
     Route: 064
  15. ORENCIA [Suspect]
     Active Substance: ABATACEPT
     Indication: Maternal exposure timing unspecified
     Route: 064
  16. DICLOFENAC SODIUM [Suspect]
     Active Substance: DICLOFENAC\DICLOFENAC SODIUM
     Indication: Maternal exposure timing unspecified
     Route: 064
  17. LEFLUNOMIDE [Suspect]
     Active Substance: LEFLUNOMIDE
     Indication: Maternal exposure timing unspecified
     Route: 064
  18. SULFAMETHOXAZOLE [Suspect]
     Active Substance: SULFAMETHOXAZOLE
     Indication: Product used for unknown indication
     Route: 064
  19. SULFASALAZINE [Suspect]
     Active Substance: SULFASALAZINE
     Indication: Maternal exposure timing unspecified
     Route: 064
  20. SULFASALAZINE [Suspect]
     Active Substance: SULFASALAZINE
     Indication: Maternal exposure timing unspecified
     Route: 064
  21. SIMPONI [Suspect]
     Active Substance: GOLIMUMAB
     Indication: Maternal exposure timing unspecified
     Route: 058
  22. SIMPONI [Suspect]
     Active Substance: GOLIMUMAB
     Indication: Maternal exposure timing unspecified
     Route: 064
  23. TRAMADOL HYDROCHLORIDE [Suspect]
     Active Substance: TRAMADOL HYDROCHLORIDE
     Indication: Maternal exposure timing unspecified
     Route: 064
  24. ACTEMRA [Suspect]
     Active Substance: TOCILIZUMAB
     Indication: Maternal exposure timing unspecified
     Route: 064
  25. ACTEMRA [Suspect]
     Active Substance: TOCILIZUMAB
     Indication: Maternal exposure timing unspecified
     Route: 064
  26. ACTEMRA [Suspect]
     Active Substance: TOCILIZUMAB
     Indication: Maternal exposure timing unspecified
     Route: 064
  27. ACTEMRA [Suspect]
     Active Substance: TOCILIZUMAB
     Indication: Maternal exposure timing unspecified
     Route: 064
  28. XELJANZ [Suspect]
     Active Substance: TOFACITINIB CITRATE
     Indication: Maternal exposure timing unspecified
     Route: 064
  29. XELJANZ [Suspect]
     Active Substance: TOFACITINIB CITRATE
     Indication: Maternal exposure timing unspecified
     Route: 064
  30. OXYCODONE [Suspect]
     Active Substance: OXYCODONE\OXYCODONE HYDROCHLORIDE
     Indication: Product used for unknown indication
     Route: 064
  31. DESOXIMETASONE [Suspect]
     Active Substance: DESOXIMETASONE
     Indication: Maternal exposure timing unspecified
     Route: 064
  32. SULFASALAZINE [Suspect]
     Active Substance: SULFASALAZINE
     Indication: Maternal exposure timing unspecified
     Route: 064
  33. PERIOGARD [Suspect]
     Active Substance: CHLORHEXIDINE GLUCONATE
     Indication: Maternal exposure timing unspecified
     Route: 064
  34. PLAQUENIL [Suspect]
     Active Substance: HYDROXYCHLOROQUINE SULFATE
     Indication: Product used for unknown indication
     Route: 064
  35. FLUMETHASONE PIVALATE [Suspect]
     Active Substance: FLUMETHASONE PIVALATE
     Indication: Maternal exposure timing unspecified
     Route: 064
  36. SULFAMETHOXAZOLE\TRIMETHOPRIM [Suspect]
     Active Substance: SULFAMETHOXAZOLE\TRIMETHOPRIM
     Indication: Maternal exposure timing unspecified
     Route: 064
  37. REMICADE [Suspect]
     Active Substance: INFLIXIMAB
     Indication: Maternal exposure timing unspecified
     Dosage: 400 MG POWDER FOR SOLUTION INTRAVENOUS
     Route: 064
  38. ALENDRONATE SODIUM [Suspect]
     Active Substance: ALENDRONATE SODIUM
     Indication: Product used for unknown indication
     Route: 064
  39. ENBREL [Suspect]
     Active Substance: ETANERCEPT
     Indication: Maternal exposure timing unspecified
     Route: 064
  40. PREDNISONE [Suspect]
     Active Substance: PREDNISONE
     Indication: Maternal exposure timing unspecified
     Dosage: 10 MG
     Route: 064
  41. CHLORHEXIDINE [Suspect]
     Active Substance: CHLORHEXIDINE\CHLORHEXIDINE GLUCONATE
     Indication: Product used for unknown indication
     Route: 064
  42. HYDROXYCHLOROQUINE SULFATE [Suspect]
     Active Substance: HYDROXYCHLOROQUINE SULFATE
     Indication: Maternal exposure timing unspecified
     Route: 064
  43. COSENTYX [Suspect]
     Active Substance: SECUKINUMAB
     Indication: Maternal exposure timing unspecified
     Route: 064
  44. PSEUDOEPHEDRINE HYDROCHLORIDE [Suspect]
     Active Substance: PSEUDOEPHEDRINE HYDROCHLORIDE
     Indication: Maternal exposure timing unspecified
     Route: 064
  45. MYOCHRYSINE [Suspect]
     Active Substance: GOLD SODIUM THIOMALATE
     Indication: Maternal exposure timing unspecified
     Route: 064
  46. MYOCHRYSINE [Suspect]
     Active Substance: GOLD SODIUM THIOMALATE
     Indication: Maternal exposure timing unspecified
     Route: 064
  47. ACETAMINOPHEN [Suspect]
     Active Substance: ACETAMINOPHEN
     Indication: Maternal exposure timing unspecified
     Route: 064
  48. KEVZARA [Suspect]
     Active Substance: SARILUMAB
     Indication: Maternal exposure timing unspecified
     Route: 064
  49. OTEZLA [Suspect]
     Active Substance: APREMILAST
     Indication: Maternal exposure timing unspecified
     Route: 064
  50. PHTHALYLSULFATHIAZOLE [Suspect]
     Active Substance: PHTHALYLSULFATHIAZOLE
     Indication: Maternal exposure timing unspecified
     Route: 064
  51. FOSAMAX [Suspect]
     Active Substance: ALENDRONATE SODIUM
     Indication: Maternal exposure timing unspecified
     Route: 064
  52. ERELZI [Suspect]
     Active Substance: ETANERCEPT-SZZS
     Indication: Rheumatoid arthritis
     Route: 064
  53. SIRUKUMAB [Suspect]
     Active Substance: SIRUKUMAB
     Indication: Maternal exposure timing unspecified
     Route: 064
  54. AZATHIOPRINE [Suspect]
     Active Substance: AZATHIOPRINE
     Indication: Maternal exposure timing unspecified
     Route: 064
  55. GOLD SODIUM THIOMALATE [Suspect]
     Active Substance: GOLD SODIUM THIOMALATE
     Indication: Maternal exposure timing unspecified
     Route: 064
  56. GOLD [Suspect]
     Active Substance: GOLD
     Indication: Maternal exposure timing unspecified
     Route: 064
  57. HYDROCORTISONE [Suspect]
     Active Substance: HYDROCORTISONE
     Indication: Maternal exposure timing unspecified
     Dosage: CREAM USP 0.5%
     Route: 064
  58. METHYLPREDNISOLONE [Suspect]
     Active Substance: METHYLPREDNISOLONE
     Indication: Maternal exposure timing unspecified
     Route: 064
  59. CORTISONE ACETATE [Suspect]
     Active Substance: CORTISONE ACETATE
     Indication: Maternal exposure timing unspecified
     Route: 064
  60. SULFAMETHOXAZOLE\TRIMETHOPRIM [Suspect]
     Active Substance: SULFAMETHOXAZOLE\TRIMETHOPRIM
     Indication: Maternal exposure timing unspecified
     Route: 064
  61. STELARA [Suspect]
     Active Substance: USTEKINUMAB
     Indication: Maternal exposure timing unspecified
     Route: 064
  62. MINOCYCLINE [Suspect]
     Active Substance: MINOCYCLINE HYDROCHLORIDE
     Indication: Maternal exposure timing unspecified
     Route: 064

REACTIONS (2)
  - Foetal exposure during pregnancy [Unknown]
  - Congenital anomaly [Not Recovered/Not Resolved]
